FAERS Safety Report 7760537-4 (Version None)
Quarter: 2011Q3

REPORT INFORMATION
  Report Type: 
  Country: None (occurrence: None)
  Receive Date: 20110919
  Receipt Date: 20110906
  Transmission Date: 20111222
  Serious: Yes (Other)
  Sender: FDA-Public Use
  Company Number: US-ELI_LILLY_AND_COMPANY-US201109003310

PATIENT
  Sex: Female

DRUGS (9)
  1. DECADRON [Concomitant]
     Dosage: 4 MG, BID
  2. VITAMIN B-12 [Concomitant]
     Dosage: UNK
     Dates: start: 20110805
  3. PERCOCET [Concomitant]
     Indication: BACK PAIN
     Dosage: UNK UNK, PRN
  4. CARBOPLATIN [Concomitant]
  5. LYRICA [Concomitant]
     Dosage: 75 MG, BID
  6. BEVACIZUMAB [Concomitant]
  7. FOLIC ACID [Concomitant]
  8. ALIMTA [Suspect]
     Indication: CERVIX CARCINOMA
     Dosage: 400 MG/M2 EVERY 21 DAYS
     Dates: start: 20110815, end: 20110902
  9. FENTANYL [Concomitant]
     Dosage: 75 UG, EVERY 72 HOURS

REACTIONS (4)
  - CHEST DISCOMFORT [None]
  - DYSPNOEA [None]
  - HYPOTENSION [None]
  - ERYTHEMA [None]
